FAERS Safety Report 4800163-X (Version None)
Quarter: 2005Q4

REPORT INFORMATION
  Report Type: 
  Country: None (occurrence: None)
  Receive Date: 20051017
  Receipt Date: 20051007
  Transmission Date: 20060501
  Serious: Yes (Death)
  Sender: FDA-Public Use
  Company Number: DE-JNJFOC-20051001965

PATIENT
  Age: 73 Year
  Sex: Female

DRUGS (1)
  1. TAVANIC 500 [Suspect]
     Indication: RESPIRATORY TRACT INFECTION
     Route: 048

REACTIONS (1)
  - DEATH [None]
